FAERS Safety Report 9747509 (Version 2)
Quarter: 2013Q4

REPORT INFORMATION
  Report Type: Spontaneous
  Country: AU (occurrence: AU)
  Receive Date: 20131212
  Receipt Date: 20131224
  Transmission Date: 20140711
  Serious: Yes (Other)
  Sender: FDA-Public Use
  Company Number: AU-AMGEN-AUSSP2013086283

PATIENT
  Sex: Female

DRUGS (6)
  1. PROLIA [Suspect]
     Indication: OSTEOPOROSIS
     Dosage: 60 MG, UNK
     Route: 058
  2. SALOFALK                           /00000301/ [Concomitant]
     Indication: COLITIS ULCERATIVE
  3. METHOTREXATE [Concomitant]
     Indication: COLITIS ULCERATIVE
     Dosage: 7.5 MG, QWK
  4. PREDNISOLONE [Concomitant]
     Dosage: 5 MG, UNK
  5. CALCIUM [Concomitant]
  6. VITAMIN D                          /00107901/ [Concomitant]

REACTIONS (3)
  - Crohn^s disease [Unknown]
  - Alopecia [Unknown]
  - Onychoclasis [Unknown]
